FAERS Safety Report 10227558 (Version 1)
Quarter: 2014Q2

REPORT INFORMATION
  Report Type: Spontaneous
  Country: US (occurrence: None)
  Receive Date: 20140606
  Receipt Date: 20140606
  Transmission Date: 20141212
  Serious: Yes (Death)
  Sender: FDA-Public Use
  Company Number: SYM-2014-21619

PATIENT
  Sex: Male

DRUGS (1)
  1. XENAZINE [Suspect]
     Indication: HUNTINGTON^S DISEASE
     Dosage: TAKE 1 + 1/2 TABLETS (37.5MG) BY MOUTH AT 8AM, 1/2 TABLET (12.5MG) AT 8PM AS DIRECTED, 3 IN 1 D, ORAL
     Dates: start: 20120124

REACTIONS (1)
  - Death [None]
